FAERS Safety Report 4430179-7 (Version None)
Quarter: 2004Q3

REPORT INFORMATION
  Report Type: 
  Country: None (occurrence: None)
  Receive Date: 20040816
  Receipt Date: 20040813
  Transmission Date: 20050211
  Serious: Yes (Life-Threatening, Hospitalization, Other)
  Sender: FDA-Public Use
  Company Number: WAES 0408USA00837

PATIENT
  Age: 81 Year
  Sex: Female

DRUGS (9)
  1. COZAAR [Suspect]
     Indication: HYPERTENSION
     Dosage: SEE IMAGE
     Route: 048
     Dates: start: 20001017, end: 20001208
  2. COZAAR [Suspect]
     Indication: HYPERTENSION
     Dosage: SEE IMAGE
     Route: 048
     Dates: start: 20001209
  3. EPADEL (ETHYL EICOSAPENTAENOATE) [Suspect]
     Indication: HYPERLIPIDAEMIA
     Dosage: 600 MG/BID PO
     Route: 048
     Dates: start: 20020902, end: 20040630
  4. CARDENALIN (DOXAZOSIN MESYLATE) [Suspect]
     Indication: HYPERTENSION
     Dosage: 2 MG/DAILY PO
     Route: 048
     Dates: start: 20021028
  5. APLACE [Concomitant]
  6. FLUITRAN [Concomitant]
  7. ORUDIS SR [Concomitant]
  8. RHYTHMY [Concomitant]
  9. FAMOTIDINE [Concomitant]

REACTIONS (3)
  - DUODENAL ULCER PERFORATION [None]
  - HELICOBACTER PYLORI IDENTIFICATION TEST POSITIVE [None]
  - VOMITING [None]
